FAERS Safety Report 23990896 (Version 1)
Quarter: 2024Q2

REPORT INFORMATION
  Report Type: Report from Study
  Country: US (occurrence: US)
  Receive Date: 20240619
  Receipt Date: 20240619
  Transmission Date: 20240716
  Serious: Yes (Hospitalization)
  Sender: FDA-Public Use
  Company Number: US-PUMA BIOTECHNOLOGY, LTD.-2024-PUM-US000248

PATIENT

DRUGS (7)
  1. NERLYNX [Suspect]
     Active Substance: NERATINIB
     Indication: Breast cancer metastatic
     Dosage: 3 TABLETS (120MG), DAILY
     Route: 048
     Dates: start: 20231227
  2. NERLYNX [Suspect]
     Active Substance: NERATINIB
     Indication: Neoplasm malignant
     Dosage: 4 TABLETS (160MG), DAILY
     Route: 048
  3. NERLYNX [Suspect]
     Active Substance: NERATINIB
     Indication: HER2 positive breast cancer
     Dosage: 3 TABLETS (120MG), DAILY
     Route: 048
     Dates: end: 20240111
  4. NERLYNX [Suspect]
     Active Substance: NERATINIB
     Dosage: 2 TABLETS (80MG), DAILY
     Route: 048
     Dates: start: 20240506, end: 20240519
  5. NERLYNX [Suspect]
     Active Substance: NERATINIB
     Dosage: 4 TABLETS (160MG), DAILY
     Route: 048
     Dates: start: 20240520
  6. PROTONIX [Concomitant]
     Active Substance: PANTOPRAZOLE SODIUM
     Indication: Product used for unknown indication
  7. SUCRALFATE [Concomitant]
     Active Substance: SUCRALFATE
     Indication: Product used for unknown indication

REACTIONS (7)
  - Anaemia [Unknown]
  - Gastrointestinal haemorrhage [Recovering/Resolving]
  - Asthenia [Recovered/Resolved]
  - Diarrhoea [Recovered/Resolved]
  - Fatigue [Recovered/Resolved]
  - Off label use [Unknown]
  - Underdose [Unknown]

NARRATIVE: CASE EVENT DATE: 20231229
